FAERS Safety Report 24007697 (Version 1)
Quarter: 2024Q2

REPORT INFORMATION
  Report Type: Report from Study
  Country: US (occurrence: US)
  Receive Date: 20240625
  Receipt Date: 20240625
  Transmission Date: 20240716
  Serious: No
  Sender: FDA-Public Use
  Company Number: US-ROCHE-10000004285

PATIENT
  Age: 53 Year
  Sex: Female
  Weight: 111.13 kg

DRUGS (4)
  1. OCREVUS [Suspect]
     Active Substance: OCRELIZUMAB
     Indication: Relapsing multiple sclerosis
     Dosage: 300 MG SINGLE-USE VIAL, DATE OF TREATMENT = 16/MAY/2024, 15/NOV/2023, 10/APR/2023
     Route: 042
     Dates: end: 20220701
  2. OCREVUS [Suspect]
     Active Substance: OCRELIZUMAB
     Dosage: STRENGTH: 300MG/10ML SOLUTION
     Route: 042
  3. ACETAMINOPHEN\HYDROCODONE [Concomitant]
     Active Substance: ACETAMINOPHEN\HYDROCODONE
  4. PRAVASTATIN [Concomitant]
     Active Substance: PRAVASTATIN

REACTIONS (7)
  - Suspected COVID-19 [Unknown]
  - Blood immunoglobulin A decreased [Unknown]
  - Blood glucose increased [Unknown]
  - Blood chloride increased [Unknown]
  - Blood calcium increased [Unknown]
  - Viral infection [Unknown]
  - Chest pain [Unknown]
